FAERS Safety Report 13106491 (Version 2)
Quarter: 2017Q2

REPORT INFORMATION
  Report Type: Spontaneous
  Country: US (occurrence: US)
  Receive Date: 20170111
  Receipt Date: 20170518
  Transmission Date: 20170830
  Serious: No
  Sender: FDA-Public Use
  Company Number: US-TEVA-728539ACC

PATIENT
  Age: 54 Year
  Sex: Male

DRUGS (17)
  1. MULTIVITAMIN [Concomitant]
     Active Substance: VITAMINS
  2. LEVOTHYROXIN [Concomitant]
     Active Substance: LEVOTHYROXINE
  3. VITAMIN D [Concomitant]
     Active Substance: CHOLECALCIFEROL
  4. FINASTERIDE. [Concomitant]
     Active Substance: FINASTERIDE
  5. LECITHIN [Concomitant]
     Active Substance: LECITHIN
  6. VITAMIN B12 [Concomitant]
     Active Substance: CYANOCOBALAMIN
  7. SIMVASTATIN. [Concomitant]
     Active Substance: SIMVASTATIN
  8. DOXYCYCLINE. [Concomitant]
     Active Substance: DOXYCYCLINE
  9. PROVIGIL [Concomitant]
     Active Substance: MODAFINIL
  10. ZOLOFT [Concomitant]
     Active Substance: SERTRALINE HYDROCHLORIDE
  11. SPIRULINA [Concomitant]
     Active Substance: SPIRULINA
  12. ASPIRIN. [Concomitant]
     Active Substance: ASPIRIN
  13. CALCIUM GLUCONATE. [Concomitant]
     Active Substance: CALCIUM GLUCONATE
  14. FISH OIL [Concomitant]
     Active Substance: FISH OIL
  15. COPAXONE [Suspect]
     Active Substance: GLATIRAMER ACETATE
     Indication: MULTIPLE SCLEROSIS
     Route: 058
     Dates: start: 20060516
  16. METHYLPR SS [Concomitant]
  17. GALANTAMINE ER [Concomitant]
     Active Substance: GALANTAMINE

REACTIONS (2)
  - Dyspnoea [Recovered/Resolved with Sequelae]
  - Nausea [Recovered/Resolved with Sequelae]

NARRATIVE: CASE EVENT DATE: 201610
